FAERS Safety Report 4641934-2 (Version None)
Quarter: 2005Q2

REPORT INFORMATION
  Report Type: 
  Country: None (occurrence: None)
  Receive Date: 20050420
  Receipt Date: 20050412
  Transmission Date: 20051028
  Serious: Yes (Death)
  Sender: FDA-Public Use
  Company Number: USA-2005-0019448

PATIENT
  Age: 32 Year
  Sex: Female
  Weight: 66.2 kg

DRUGS (2)
  1. OXYCONTIN [Suspect]
     Indication: PAIN
     Dosage: 80MG, Q12H, ORAL
     Route: 048
     Dates: start: 20020101, end: 20041016
  2. OXYCODONE HCL [Suspect]
     Indication: PAIN
     Dosage: 5 MG, PRN, ORAL
     Route: 048

REACTIONS (9)
  - ACCIDENTAL DEATH [None]
  - ACCIDENTAL OVERDOSE [None]
  - CARDIOMEGALY [None]
  - CHOLECYSTECTOMY [None]
  - DRUG TOXICITY [None]
  - HYPOVENTILATION [None]
  - NEPHROSCLEROSIS [None]
  - SCAR [None]
  - SPLENITIS [None]
